FAERS Safety Report 8943844 (Version 2)
Quarter: 2012Q4

REPORT INFORMATION
  Report Type: 
  Country: CA (occurrence: CA)
  Receive Date: 20121204
  Receipt Date: 20121206
  Transmission Date: 20130627
  Serious: Yes (Hospitalization)
  Sender: FDA-Public Use
  Company Number: PHHY2012CA110175

PATIENT
  Sex: Female

DRUGS (1)
  1. CLOZARIL [Suspect]
     Dosage: UNK UKN, UNK
     Dates: start: 20100107, end: 20120717

REACTIONS (2)
  - Dementia [Unknown]
  - Terminal state [Unknown]
